FAERS Safety Report 7893981-5 (Version None)
Quarter: 2011Q4

REPORT INFORMATION
  Report Type: 
  Country: None (occurrence: None)
  Receive Date: 20111104
  Receipt Date: 20111027
  Transmission Date: 20120403
  Serious: Yes (Death)
  Sender: FDA-Public Use
  Company Number: DK-PFIZER INC-2011262206

PATIENT
  Age: 61 Year
  Sex: Male

DRUGS (2)
  1. SUNITINIB MALATE [Suspect]
     Indication: METASTATIC RENAL CELL CARCINOMA
     Dosage: 25 MG, 1X/DAY FOR 28 DAYS THEN PAUSE FOR 14 DAYS
     Dates: end: 20090614
  2. SUNITINIB MALATE [Suspect]
     Dosage: 37.5 MG, 1X/DAY FOR 13 DAYS THEN PAUSE FOR 23 DAYS
     Dates: start: 20090421

REACTIONS (1)
  - DEATH [None]
